FAERS Safety Report 10204108 (Version 37)
Quarter: 2016Q3

REPORT INFORMATION
  Report Type: Report from Study
  Country: TR (occurrence: TR)
  Receive Date: 20140529
  Receipt Date: 20160805
  Transmission Date: 20161108
  Serious: Yes (Hospitalization, Other)
  Sender: FDA-Public Use
  Company Number: TR-ROCHE-1407012

PATIENT
  Age: 50 Year
  Sex: Male
  Weight: 80 kg

DRUGS (131)
  1. OBINUTUZUMAB [Suspect]
     Active Substance: OBINUTUZUMAB
     Dosage: C3D1
     Route: 042
     Dates: start: 20140410, end: 20140410
  2. FLUDARABINE [Suspect]
     Active Substance: FLUDARABINE PHOSPHATE
     Dosage: C1D3
     Route: 042
     Dates: start: 20140214, end: 20140214
  3. FLUDARABINE [Suspect]
     Active Substance: FLUDARABINE PHOSPHATE
     Dosage: C4D1
     Route: 042
     Dates: start: 20140512, end: 20140512
  4. FLUDARABINE [Suspect]
     Active Substance: FLUDARABINE PHOSPHATE
     Dosage: C5D2
     Route: 042
     Dates: start: 20140610, end: 20140610
  5. CYCLOPHOSPHAMIDE. [Suspect]
     Active Substance: CYCLOPHOSPHAMIDE
     Dosage: C4D2
     Route: 042
     Dates: start: 20140513, end: 20140513
  6. CYCLOPHOSPHAMIDE. [Suspect]
     Active Substance: CYCLOPHOSPHAMIDE
     Dosage: C6D2
     Route: 042
     Dates: start: 20140715, end: 20140715
  7. BACTRIM [Concomitant]
     Active Substance: SULFAMETHOXAZOLE\TRIMETHOPRIM
     Route: 048
     Dates: start: 20140310, end: 20140311
  8. BACTRIM [Concomitant]
     Active Substance: SULFAMETHOXAZOLE\TRIMETHOPRIM
     Route: 048
     Dates: start: 20140317, end: 20140318
  9. BACTRIM [Concomitant]
     Active Substance: SULFAMETHOXAZOLE\TRIMETHOPRIM
     Route: 048
     Dates: start: 20140707, end: 20140708
  10. BACTRIM [Concomitant]
     Active Substance: SULFAMETHOXAZOLE\TRIMETHOPRIM
     Route: 048
     Dates: start: 20140714, end: 20140715
  11. METHYLPREDNISOLONE. [Concomitant]
     Active Substance: METHYLPREDNISOLONE
     Route: 042
     Dates: start: 20140226, end: 20140226
  12. ASIVIRAL [Concomitant]
     Active Substance: ACYCLOVIR
     Route: 048
     Dates: start: 20140314, end: 20140314
  13. ZOFER [Concomitant]
     Active Substance: ONDANSETRON HYDROCHLORIDE
     Route: 042
     Dates: start: 20140412, end: 20140412
  14. FLUDARABINE [Suspect]
     Active Substance: FLUDARABINE PHOSPHATE
     Indication: CHRONIC LYMPHOCYTIC LEUKAEMIA
     Dosage: C1D1
     Route: 042
     Dates: start: 20140212, end: 20140212
  15. FLUDARABINE [Suspect]
     Active Substance: FLUDARABINE PHOSPHATE
     Dosage: C1D1
     Route: 042
     Dates: start: 20140213, end: 20140213
  16. FLUDARABINE [Suspect]
     Active Substance: FLUDARABINE PHOSPHATE
     Dosage: C2D2
     Route: 042
     Dates: start: 20140313, end: 20140313
  17. FLUDARABINE [Suspect]
     Active Substance: FLUDARABINE PHOSPHATE
     Dosage: C2D3
     Route: 042
     Dates: start: 20140314, end: 20140314
  18. FLUDARABINE [Suspect]
     Active Substance: FLUDARABINE PHOSPHATE
     Dosage: C6D3
     Route: 042
     Dates: start: 20140716, end: 20140716
  19. CYCLOPHOSPHAMIDE. [Suspect]
     Active Substance: CYCLOPHOSPHAMIDE
     Dosage: C2D2
     Route: 042
     Dates: start: 20140313, end: 20140313
  20. CYCLOPHOSPHAMIDE. [Suspect]
     Active Substance: CYCLOPHOSPHAMIDE
     Dosage: C4D1
     Route: 042
     Dates: start: 20140512, end: 20140512
  21. BACTRIM [Concomitant]
     Active Substance: SULFAMETHOXAZOLE\TRIMETHOPRIM
     Route: 048
     Dates: start: 20140616, end: 20140617
  22. BACTRIM [Concomitant]
     Active Substance: SULFAMETHOXAZOLE\TRIMETHOPRIM
     Route: 048
     Dates: start: 20140623, end: 20140624
  23. BACTRIM [Concomitant]
     Active Substance: SULFAMETHOXAZOLE\TRIMETHOPRIM
     Route: 048
     Dates: start: 20140721, end: 20140722
  24. BACTRIM [Concomitant]
     Active Substance: SULFAMETHOXAZOLE\TRIMETHOPRIM
     Route: 048
     Dates: start: 20140804, end: 20140805
  25. METHYLPREDNISOLONE. [Concomitant]
     Active Substance: METHYLPREDNISOLONE
     Route: 042
     Dates: start: 20140512, end: 20140512
  26. TRIMOKS FORT [Concomitant]
     Route: 048
     Dates: start: 20140225, end: 20140226
  27. CAFFEINE/PARACETAMOL [Concomitant]
     Route: 048
     Dates: start: 20140512, end: 20140512
  28. METOPRIM FORT [Concomitant]
     Indication: PROPHYLAXIS
     Route: 048
     Dates: start: 20140408, end: 20140409
  29. METOPRIM FORT [Concomitant]
     Route: 048
     Dates: start: 20140824, end: 20140824
  30. DEGASTROL [Concomitant]
     Indication: PROPHYLAXIS
     Route: 048
     Dates: start: 20140512, end: 20140512
  31. AKLOVIR [Concomitant]
     Route: 065
     Dates: start: 20140521, end: 20141107
  32. OMEPROL [Concomitant]
     Active Substance: OMEPRAZOLE
     Indication: PROPHYLAXIS
     Route: 048
     Dates: start: 20140610, end: 20140610
  33. OBINUTUZUMAB [Suspect]
     Active Substance: OBINUTUZUMAB
     Dosage: C1D15
     Route: 042
     Dates: start: 20140226, end: 20140226
  34. OBINUTUZUMAB [Suspect]
     Active Substance: OBINUTUZUMAB
     Dosage: C4D1
     Route: 042
     Dates: start: 20140512, end: 20140512
  35. FLUDARABINE [Suspect]
     Active Substance: FLUDARABINE PHOSPHATE
     Dosage: C4D2
     Route: 042
     Dates: start: 20140513, end: 20140513
  36. BACTRIM [Concomitant]
     Active Substance: SULFAMETHOXAZOLE\TRIMETHOPRIM
     Route: 048
     Dates: start: 20140324, end: 20140325
  37. BACTRIM [Concomitant]
     Active Substance: SULFAMETHOXAZOLE\TRIMETHOPRIM
     Route: 048
     Dates: start: 20140428, end: 20140429
  38. BACTRIM [Concomitant]
     Active Substance: SULFAMETHOXAZOLE\TRIMETHOPRIM
     Route: 048
     Dates: start: 20140602, end: 20140603
  39. BACTRIM [Concomitant]
     Active Substance: SULFAMETHOXAZOLE\TRIMETHOPRIM
     Route: 048
     Dates: start: 20140818, end: 20140819
  40. BACTRIM [Concomitant]
     Active Substance: SULFAMETHOXAZOLE\TRIMETHOPRIM
     Route: 048
     Dates: start: 20140915, end: 20140916
  41. CAFFEINE/PARACETAMOL [Concomitant]
     Route: 048
     Dates: start: 20140212, end: 20140212
  42. PAROL [Concomitant]
     Active Substance: ACETAMINOPHEN
     Route: 048
     Dates: start: 20140609, end: 20140609
  43. DEGASTROL [Concomitant]
     Route: 048
     Dates: start: 20140611, end: 20140611
  44. DEGASTROL [Concomitant]
     Route: 048
     Dates: start: 20140714, end: 20140715
  45. EMETRIL [Concomitant]
     Route: 042
     Dates: start: 20140609, end: 20140610
  46. KYTRIL [Concomitant]
     Active Substance: GRANISETRON HYDROCHLORIDE
     Indication: PROPHYLAXIS
     Dosage: SINGLE DOSE
     Route: 042
     Dates: start: 20140714, end: 20140714
  47. PREDNOL (PREDNISOLONE) [Concomitant]
     Indication: PROPHYLAXIS
     Route: 042
     Dates: start: 20140714, end: 20140714
  48. CIPRO [Concomitant]
     Active Substance: CIPROFLOXACIN HYDROCHLORIDE
     Indication: PROPHYLAXIS
     Route: 048
     Dates: start: 20140729, end: 20140904
  49. CYCLOPHOSPHAMIDE. [Suspect]
     Active Substance: CYCLOPHOSPHAMIDE
     Dosage: C6D1
     Route: 042
     Dates: start: 20140714, end: 20140714
  50. BACTRIM [Concomitant]
     Active Substance: SULFAMETHOXAZOLE\TRIMETHOPRIM
     Route: 048
     Dates: start: 20140303, end: 20140304
  51. BACTRIM [Concomitant]
     Active Substance: SULFAMETHOXAZOLE\TRIMETHOPRIM
     Route: 048
     Dates: start: 20140512, end: 20140513
  52. BACTRIM [Concomitant]
     Active Substance: SULFAMETHOXAZOLE\TRIMETHOPRIM
     Route: 048
     Dates: start: 20140630, end: 20140701
  53. BACTRIM [Concomitant]
     Active Substance: SULFAMETHOXAZOLE\TRIMETHOPRIM
     Route: 048
     Dates: start: 20140901, end: 20140902
  54. BACTRIM [Concomitant]
     Active Substance: SULFAMETHOXAZOLE\TRIMETHOPRIM
     Route: 048
     Dates: start: 20140922, end: 20140923
  55. BACTRIM [Concomitant]
     Active Substance: SULFAMETHOXAZOLE\TRIMETHOPRIM
     Route: 048
     Dates: start: 20141013, end: 20141014
  56. PULMICORT TURBUHALER [Concomitant]
     Active Substance: BUDESONIDE
     Route: 042
     Dates: start: 20140219, end: 20140219
  57. ZOLAX (TURKEY) [Concomitant]
     Route: 065
     Dates: start: 20140521, end: 20141107
  58. AMLODIPINE [Concomitant]
     Active Substance: AMLODIPINE BESYLATE
     Route: 048
     Dates: start: 20140219, end: 20140226
  59. OBINUTUZUMAB [Suspect]
     Active Substance: OBINUTUZUMAB
     Indication: CHRONIC LYMPHOCYTIC LEUKAEMIA
     Dosage: C1D1
     Route: 042
     Dates: start: 20140212, end: 20140212
  60. OBINUTUZUMAB [Suspect]
     Active Substance: OBINUTUZUMAB
     Dosage: C2D1
     Route: 042
     Dates: start: 20140312, end: 20140312
  61. OBINUTUZUMAB [Suspect]
     Active Substance: OBINUTUZUMAB
     Dosage: C6D1
     Route: 042
     Dates: start: 20140714, end: 20140714
  62. FLUDARABINE [Suspect]
     Active Substance: FLUDARABINE PHOSPHATE
     Dosage: C3D1
     Route: 042
     Dates: start: 20140410, end: 20140410
  63. FLUDARABINE [Suspect]
     Active Substance: FLUDARABINE PHOSPHATE
     Dosage: C3D2
     Route: 042
     Dates: start: 20140411, end: 20140411
  64. CYCLOPHOSPHAMIDE. [Suspect]
     Active Substance: CYCLOPHOSPHAMIDE
     Indication: CHRONIC LYMPHOCYTIC LEUKAEMIA
     Dosage: C1D1?.
     Route: 042
     Dates: start: 20140212, end: 20140212
  65. CYCLOPHOSPHAMIDE. [Suspect]
     Active Substance: CYCLOPHOSPHAMIDE
     Dosage: C1D2
     Route: 042
     Dates: start: 20140213, end: 20140213
  66. CYCLOPHOSPHAMIDE. [Suspect]
     Active Substance: CYCLOPHOSPHAMIDE
     Dosage: C1D3
     Route: 042
     Dates: start: 20140214, end: 20140214
  67. CYCLOPHOSPHAMIDE. [Suspect]
     Active Substance: CYCLOPHOSPHAMIDE
     Dosage: C2D1
     Route: 042
     Dates: start: 20140312, end: 20140312
  68. CYCLOPHOSPHAMIDE. [Suspect]
     Active Substance: CYCLOPHOSPHAMIDE
     Dosage: C3D2
     Route: 042
     Dates: start: 20140411, end: 20140411
  69. CYCLOPHOSPHAMIDE. [Suspect]
     Active Substance: CYCLOPHOSPHAMIDE
     Dosage: C5D2
     Route: 042
     Dates: start: 20140610, end: 20140610
  70. URIKOLIZ [Concomitant]
     Active Substance: ALLOPURINOL
     Route: 048
     Dates: start: 20140714, end: 20140717
  71. BACTRIM [Concomitant]
     Active Substance: SULFAMETHOXAZOLE\TRIMETHOPRIM
     Indication: PROPHYLAXIS
     Route: 048
     Dates: start: 20140212, end: 20140214
  72. BACTRIM [Concomitant]
     Active Substance: SULFAMETHOXAZOLE\TRIMETHOPRIM
     Route: 048
     Dates: start: 20140505, end: 20140506
  73. BACTRIM [Concomitant]
     Active Substance: SULFAMETHOXAZOLE\TRIMETHOPRIM
     Route: 048
     Dates: start: 20140811, end: 20140812
  74. PULMICORT TURBUHALER [Concomitant]
     Active Substance: BUDESONIDE
     Route: 042
     Dates: start: 20140211, end: 20140214
  75. ASIVIRAL [Concomitant]
     Active Substance: ACYCLOVIR
     Route: 048
     Dates: start: 20140714, end: 20140714
  76. ASIVIRAL [Concomitant]
     Active Substance: ACYCLOVIR
     Route: 048
     Dates: start: 20140821, end: 20140821
  77. CAFFEINE/PARACETAMOL [Concomitant]
     Route: 048
     Dates: start: 20140219, end: 20140219
  78. CAFFEINE/PARACETAMOL [Concomitant]
     Route: 048
     Dates: start: 20140226, end: 20140226
  79. ACICLOVIR [Concomitant]
     Active Substance: ACYCLOVIR
     Route: 048
     Dates: start: 20140213, end: 20140213
  80. ACICLOVIR [Concomitant]
     Active Substance: ACYCLOVIR
     Route: 048
     Dates: start: 20140214
  81. PAROL [Concomitant]
     Active Substance: ACETAMINOPHEN
     Route: 048
     Dates: start: 20140312, end: 20140312
  82. PAROL [Concomitant]
     Active Substance: ACETAMINOPHEN
     Route: 048
     Dates: start: 20140821, end: 20140821
  83. AKLOVIR [Concomitant]
     Route: 065
     Dates: start: 20140214
  84. OBINUTUZUMAB [Suspect]
     Active Substance: OBINUTUZUMAB
     Dosage: C1D8
     Route: 042
     Dates: start: 20140219, end: 20140219
  85. FLUDARABINE [Suspect]
     Active Substance: FLUDARABINE PHOSPHATE
     Dosage: C3D3
     Route: 042
     Dates: start: 20140412, end: 20140412
  86. FLUDARABINE [Suspect]
     Active Substance: FLUDARABINE PHOSPHATE
     Dosage: C4D3
     Route: 042
     Dates: start: 20140514, end: 20140514
  87. FLUDARABINE [Suspect]
     Active Substance: FLUDARABINE PHOSPHATE
     Dosage: C6D2
     Route: 042
     Dates: start: 20140715, end: 20140715
  88. CYCLOPHOSPHAMIDE. [Suspect]
     Active Substance: CYCLOPHOSPHAMIDE
     Dosage: C2D3
     Route: 042
     Dates: start: 20140314, end: 20140314
  89. CYCLOPHOSPHAMIDE. [Suspect]
     Active Substance: CYCLOPHOSPHAMIDE
     Dosage: C3D3
     Route: 042
     Dates: start: 20140412, end: 20140412
  90. CYCLOPHOSPHAMIDE. [Suspect]
     Active Substance: CYCLOPHOSPHAMIDE
     Dosage: C5D1
     Route: 042
     Dates: start: 20140609, end: 20140609
  91. CYCLOPHOSPHAMIDE. [Suspect]
     Active Substance: CYCLOPHOSPHAMIDE
     Dosage: C5D3
     Route: 042
     Dates: start: 20140611, end: 20140611
  92. BACTRIM [Concomitant]
     Active Substance: SULFAMETHOXAZOLE\TRIMETHOPRIM
     Route: 048
     Dates: start: 20140331, end: 20140401
  93. BACTRIM [Concomitant]
     Active Substance: SULFAMETHOXAZOLE\TRIMETHOPRIM
     Route: 048
     Dates: start: 20140728, end: 20140729
  94. OMEPRAZOLE. [Concomitant]
     Active Substance: OMEPRAZOLE
     Route: 042
     Dates: start: 20140212, end: 20140219
  95. PREDNOL (PREDNISOLONE) [Concomitant]
     Route: 042
     Dates: start: 20140609, end: 20140609
  96. FLUDARABINE [Suspect]
     Active Substance: FLUDARABINE PHOSPHATE
     Dosage: C2D1
     Route: 042
     Dates: start: 20140312, end: 20140312
  97. FLUDARABINE [Suspect]
     Active Substance: FLUDARABINE PHOSPHATE
     Dosage: C6D1
     Route: 042
     Dates: start: 20140714, end: 20140714
  98. CYCLOPHOSPHAMIDE. [Suspect]
     Active Substance: CYCLOPHOSPHAMIDE
     Dosage: C3D1
     Route: 042
     Dates: start: 20140410, end: 20140410
  99. CYCLOPHOSPHAMIDE. [Suspect]
     Active Substance: CYCLOPHOSPHAMIDE
     Dosage: C6D3
     Route: 042
     Dates: start: 20140716, end: 20140716
  100. BACTRIM [Concomitant]
     Active Substance: SULFAMETHOXAZOLE\TRIMETHOPRIM
     Route: 048
     Dates: start: 20140407, end: 20140408
  101. BACTRIM [Concomitant]
     Active Substance: SULFAMETHOXAZOLE\TRIMETHOPRIM
     Route: 048
     Dates: start: 20140421, end: 20140422
  102. BACTRIM [Concomitant]
     Active Substance: SULFAMETHOXAZOLE\TRIMETHOPRIM
     Route: 048
     Dates: start: 20140518, end: 20140520
  103. BACTRIM [Concomitant]
     Active Substance: SULFAMETHOXAZOLE\TRIMETHOPRIM
     Route: 048
     Dates: start: 20140526, end: 20140527
  104. BACTRIM [Concomitant]
     Active Substance: SULFAMETHOXAZOLE\TRIMETHOPRIM
     Route: 048
     Dates: start: 20141103, end: 20141104
  105. METHYLPREDNISOLONE. [Concomitant]
     Active Substance: METHYLPREDNISOLONE
     Route: 042
     Dates: start: 20140312, end: 20140313
  106. FLUZOLE (TURKEY) [Concomitant]
     Route: 048
     Dates: start: 20140212, end: 20140214
  107. ASIVIRAL [Concomitant]
     Active Substance: ACYCLOVIR
     Route: 048
     Dates: start: 20140212, end: 20140212
  108. METOPRIM FORT [Concomitant]
     Route: 048
     Dates: start: 20140825, end: 20140826
  109. EMETRIL [Concomitant]
     Route: 042
     Dates: start: 20140512, end: 20140514
  110. TAZOPERAN (PIPERACILLIN SODIUM/TAZOBACTAM) [Concomitant]
     Dosage: 4.5 GR
     Route: 042
     Dates: start: 20140820, end: 20140821
  111. TAZOPERAN (PIPERACILLIN SODIUM/TAZOBACTAM) [Concomitant]
     Dosage: 4.5 GR
     Route: 042
     Dates: start: 20140822, end: 20140828
  112. OBINUTUZUMAB [Suspect]
     Active Substance: OBINUTUZUMAB
     Dosage: C1D2
     Route: 042
     Dates: start: 20140213, end: 20140213
  113. OBINUTUZUMAB [Suspect]
     Active Substance: OBINUTUZUMAB
     Dosage: C5D1
     Route: 042
     Dates: start: 20140609, end: 20140609
  114. FLUDARABINE [Suspect]
     Active Substance: FLUDARABINE PHOSPHATE
     Dosage: C5D1
     Route: 042
     Dates: start: 20140609, end: 20140609
  115. FLUDARABINE [Suspect]
     Active Substance: FLUDARABINE PHOSPHATE
     Dosage: C5D3
     Route: 042
     Dates: start: 20140611, end: 20140611
  116. CYCLOPHOSPHAMIDE. [Suspect]
     Active Substance: CYCLOPHOSPHAMIDE
     Dosage: C4D3
     Route: 042
     Dates: start: 20140514, end: 20140514
  117. URIKOLIZ [Concomitant]
     Active Substance: ALLOPURINOL
     Route: 048
     Dates: start: 20140210, end: 20140410
  118. BACTRIM [Concomitant]
     Active Substance: SULFAMETHOXAZOLE\TRIMETHOPRIM
     Route: 048
     Dates: start: 20140219, end: 20140224
  119. BACTRIM [Concomitant]
     Active Substance: SULFAMETHOXAZOLE\TRIMETHOPRIM
     Route: 048
     Dates: start: 20140414, end: 20140415
  120. BACTRIM [Concomitant]
     Active Substance: SULFAMETHOXAZOLE\TRIMETHOPRIM
     Route: 048
     Dates: start: 20140609, end: 20140610
  121. BACTRIM [Concomitant]
     Active Substance: SULFAMETHOXAZOLE\TRIMETHOPRIM
     Route: 048
     Dates: start: 20140908, end: 20140909
  122. BACTRIM [Concomitant]
     Active Substance: SULFAMETHOXAZOLE\TRIMETHOPRIM
     Route: 048
     Dates: start: 20141006, end: 20141007
  123. BACTRIM [Concomitant]
     Active Substance: SULFAMETHOXAZOLE\TRIMETHOPRIM
     Route: 048
     Dates: start: 20141020, end: 20141021
  124. BACTRIM [Concomitant]
     Active Substance: SULFAMETHOXAZOLE\TRIMETHOPRIM
     Route: 048
     Dates: start: 20141027, end: 20141028
  125. METHYLPREDNISOLONE. [Concomitant]
     Active Substance: METHYLPREDNISOLONE
     Route: 042
     Dates: start: 20140212, end: 20140213
  126. METHYLPREDNISOLONE. [Concomitant]
     Active Substance: METHYLPREDNISOLONE
     Route: 042
     Dates: start: 20140219, end: 20140219
  127. ZOLAX (TURKEY) [Concomitant]
     Route: 048
     Dates: start: 20140219
  128. OMEPRAZOLE. [Concomitant]
     Active Substance: OMEPRAZOLE
     Route: 042
     Dates: start: 20140226, end: 20140226
  129. DEGASTROL [Concomitant]
     Route: 048
     Dates: start: 20140820, end: 20140821
  130. AKLOVIR [Concomitant]
     Route: 065
     Dates: start: 20140213, end: 20140213
  131. AMOKLAVIN [Concomitant]
     Indication: PROPHYLAXIS
     Route: 065
     Dates: start: 20140829, end: 20140904

REACTIONS (2)
  - Pyrexia [Recovered/Resolved]
  - Neutropenia [Recovered/Resolved]

NARRATIVE: CASE EVENT DATE: 20140314
